FAERS Safety Report 5732368-8 (Version None)
Quarter: 2008Q2

REPORT INFORMATION
  Report Type: 
  Country: None (occurrence: None)
  Receive Date: 20080508
  Receipt Date: 20080429
  Transmission Date: 20081010
  Serious: Yes (Hospitalization)
  Sender: FDA-Public Use
  Company Number: US-BAXTER-2008BH004608

PATIENT
  Age: 1 Month
  Sex: Male

DRUGS (29)
  1. ADVATE [Suspect]
     Indication: FACTOR VIII DEFICIENCY
     Dosage: DOSE UNIT:UNKNOWN
     Route: 042
     Dates: start: 20061208, end: 20061208
  2. ADVATE [Suspect]
     Indication: IMMUNE ENHANCEMENT THERAPY
     Dosage: DOSE UNIT:UNKNOWN
     Route: 042
     Dates: start: 20061208, end: 20061208
  3. ADVATE [Suspect]
     Route: 042
     Dates: start: 20070705, end: 20070705
  4. ADVATE [Suspect]
     Route: 042
     Dates: start: 20070705, end: 20070705
  5. ADVATE [Suspect]
     Route: 042
     Dates: start: 20070706, end: 20070709
  6. ADVATE [Suspect]
     Route: 042
     Dates: start: 20070706, end: 20070709
  7. ADVATE [Suspect]
     Route: 042
     Dates: start: 20070710, end: 20070717
  8. ADVATE [Suspect]
     Route: 042
     Dates: start: 20070710, end: 20070717
  9. ADVATE [Suspect]
     Route: 042
     Dates: start: 20070718, end: 20070718
  10. ADVATE [Suspect]
     Route: 042
     Dates: start: 20070718, end: 20070718
  11. ADVATE [Suspect]
     Route: 042
     Dates: start: 20070719, end: 20070719
  12. ADVATE [Suspect]
     Route: 042
     Dates: start: 20070719, end: 20070719
  13. ADVATE [Suspect]
     Route: 042
     Dates: start: 20070719
  14. ADVATE [Suspect]
     Route: 042
     Dates: start: 20070719
  15. ADVATE [Suspect]
     Route: 042
     Dates: start: 20070722
  16. ADVATE [Suspect]
     Route: 042
     Dates: start: 20070722
  17. ADVATE [Suspect]
     Route: 042
     Dates: start: 20070723
  18. ADVATE [Suspect]
     Route: 042
     Dates: start: 20070723
  19. ADVATE [Suspect]
     Route: 042
     Dates: start: 20071009
  20. ADVATE [Suspect]
     Route: 042
     Dates: start: 20071009
  21. ADVATE [Suspect]
     Route: 042
     Dates: start: 20071024, end: 20071024
  22. ADVATE [Suspect]
     Route: 042
     Dates: start: 20071024, end: 20071024
  23. ADVATE [Suspect]
     Route: 042
     Dates: start: 20080312, end: 20080312
  24. ADVATE [Suspect]
     Route: 042
     Dates: start: 20080312, end: 20080312
  25. ADVATE [Suspect]
     Route: 042
     Dates: start: 20080406
  26. ADVATE [Suspect]
     Route: 042
     Dates: start: 20080406
  27. NOVOSEVEN [Concomitant]
     Indication: PROPHYLAXIS
     Route: 042
     Dates: start: 20070719, end: 20070720
  28. NOVOSEVEN [Concomitant]
     Route: 042
     Dates: start: 20070721, end: 20070721
  29. NOVOSEVEN [Concomitant]
     Indication: IMMUNE ENHANCEMENT THERAPY
     Route: 042
     Dates: start: 20070723, end: 20070829

REACTIONS (10)
  - ABDOMINAL TENDERNESS [None]
  - FACTOR VIII INHIBITION [None]
  - HAEMATOMA [None]
  - HAEMOGLOBIN DECREASED [None]
  - INJURY [None]
  - MOUTH HAEMORRHAGE [None]
  - OEDEMA PERIPHERAL [None]
  - RENAL HAEMATOMA [None]
  - TONGUE HAEMORRHAGE [None]
  - VOMITING [None]
